FAERS Safety Report 17047213 (Version 10)
Quarter: 2020Q3

REPORT INFORMATION
  Report Type: Report from Study
  Country: IL (occurrence: IL)
  Receive Date: 20191119
  Receipt Date: 20200820
  Transmission Date: 20201102
  Serious: Yes (Hospitalization, Other)
  Sender: FDA-Public Use
  Company Number: IL-ACTELION-A-CH2019-194869

PATIENT
  Age: 66 Year
  Sex: Female

DRUGS (19)
  1. UPTRAVI [Suspect]
     Active Substance: SELEXIPAG
     Dosage: 200 MCG, BID
     Route: 048
     Dates: start: 20190701
  2. TOUJEO [Concomitant]
     Active Substance: INSULIN GLARGINE
  3. SPIRONOLACTONE. [Concomitant]
     Active Substance: SPIRONOLACTONE
  4. UPTRAVI [Suspect]
     Active Substance: SELEXIPAG
     Indication: PULMONARY ARTERIAL HYPERTENSION
     Dosage: 1200 MCG, BID
     Route: 048
     Dates: start: 20190815
  5. REVATIO [Concomitant]
     Active Substance: SILDENAFIL CITRATE
  6. FUSID [Concomitant]
     Indication: CARDIAC FAILURE
     Dosage: UNK
  7. VITAMIN D [Concomitant]
     Active Substance: VITAMIN D NOS
  8. MICROPIRIN [Concomitant]
     Active Substance: ASPIRIN
  9. CLOPIDOGREL [Concomitant]
     Active Substance: CLOPIDOGREL BISULFATE
  10. LANTON [Concomitant]
  11. FUSID [Concomitant]
     Indication: RIGHT VENTRICULAR FAILURE
     Dosage: 80 MG
  12. HYDRALAZINE [Concomitant]
     Active Substance: HYDRALAZINE HYDROCHLORIDE
  13. TAMOXIFEN [Concomitant]
     Active Substance: TAMOXIFEN
  14. UPTRAVI [Suspect]
     Active Substance: SELEXIPAG
     Dosage: 1000 MCG, BID
     Route: 048
     Dates: start: 20190822, end: 20200318
  15. OPSUMIT [Suspect]
     Active Substance: MACITENTAN
     Indication: PULMONARY ARTERIAL HYPERTENSION
     Dosage: 10 MG, QD
     Route: 048
     Dates: start: 20180801
  16. OPSUMIT [Suspect]
     Active Substance: MACITENTAN
     Dosage: 10 MG, OD
     Route: 048
     Dates: start: 20190701
  17. FUSID [Concomitant]
     Indication: OEDEMA PERIPHERAL
     Dosage: UNK
     Route: 042
  18. ROSUVASTATIN CALCIUM. [Concomitant]
     Active Substance: ROSUVASTATIN CALCIUM
  19. GLUCOMIN [Concomitant]
     Active Substance: METFORMIN HYDROCHLORIDE

REACTIONS (24)
  - Acute kidney injury [Unknown]
  - Hospitalisation [Unknown]
  - Pneumonia [Not Recovered/Not Resolved]
  - Oedema peripheral [Recovering/Resolving]
  - Right ventricular failure [Not Recovered/Not Resolved]
  - Cardiac failure [Recovering/Resolving]
  - Pulmonary oedema [Recovered/Resolved with Sequelae]
  - Diastolic dysfunction [Unknown]
  - Transfusion [Unknown]
  - Headache [Recovering/Resolving]
  - Myalgia [Recovering/Resolving]
  - Asthenia [Not Recovered/Not Resolved]
  - Decreased appetite [Unknown]
  - Pain in extremity [Recovered/Resolved]
  - Oxygen saturation decreased [Not Recovered/Not Resolved]
  - Vomiting [Not Recovered/Not Resolved]
  - Pulmonary veno-occlusive disease [Unknown]
  - Fall [Unknown]
  - Erythema [Recovering/Resolving]
  - Haemoglobin decreased [Recovered/Resolved]
  - Hyperaesthesia [Recovering/Resolving]
  - Concomitant disease aggravated [Not Recovered/Not Resolved]
  - Upper limb fracture [Recovering/Resolving]
  - Nausea [Not Recovered/Not Resolved]

NARRATIVE: CASE EVENT DATE: 20190815
